FAERS Safety Report 9326090 (Version 2)
Quarter: 2013Q2

REPORT INFORMATION
  Report Type: Spontaneous
  Country: JP (occurrence: JP)
  Receive Date: 20130604
  Receipt Date: 20130611
  Transmission Date: 20140414
  Serious: Yes (Other)
  Sender: FDA-Public Use
  Company Number: JP-GE HEALTHCARE MEDICAL DIAGNOSTICS-OMPQ-NO-1305S-0692

PATIENT
  Age: 69 Year
  Sex: Female

DRUGS (7)
  1. OMNIPAQUE [Suspect]
     Indication: CHEST PAIN
     Route: 042
     Dates: start: 20130523, end: 20130523
  2. OMNIPAQUE [Suspect]
     Indication: DIAGNOSTIC PROCEDURE
  3. MAINTATE [Concomitant]
     Route: 065
  4. DIOVAN [Concomitant]
     Route: 065
  5. BAYASPIRIN [Concomitant]
     Route: 065
  6. PLAVIX [Concomitant]
     Route: 065
  7. MYOCOR [Concomitant]
     Indication: VASCULAR TEST
     Dates: start: 20130523, end: 20130523

REACTIONS (2)
  - Urticaria [Recovered/Resolved]
  - Pruritus [Recovered/Resolved]
